FAERS Safety Report 20651329 (Version 1)
Quarter: 2022Q1

REPORT INFORMATION
  Report Type: Spontaneous
  Country: DK (occurrence: DK)
  Receive Date: 20220330
  Receipt Date: 20220330
  Transmission Date: 20220423
  Serious: Yes (Other)
  Sender: FDA-Public Use
  Company Number: DK-STRIDES ARCOLAB LIMITED-2022SP003184

PATIENT
  Age: 25 Year
  Sex: Female

DRUGS (12)
  1. DEXAMETHASONE [Suspect]
     Active Substance: DEXAMETHASONE
     Indication: T-cell type acute leukaemia
     Dosage: UNK
     Route: 065
  2. DEXAMETHASONE [Suspect]
     Active Substance: DEXAMETHASONE
     Dosage: 40 MILLIGRAM,RECEIVED ON DAYS 1-4 EVERY 2 WEEKS FOR 2 COURSES
     Route: 065
  3. PREDNISOLONE [Suspect]
     Active Substance: PREDNISOLONE
     Indication: Acute graft versus host disease in liver
     Dosage: UNK,HIGH-DOSE
     Route: 065
  4. PREDNISOLONE [Suspect]
     Active Substance: PREDNISOLONE
     Indication: Acute graft versus host disease in intestine
     Dosage: UNK, DOSE TAPERED
     Route: 065
  5. CYCLOSPORINE [Suspect]
     Active Substance: CYCLOSPORINE
     Indication: Acute graft versus host disease in liver
     Dosage: UNK
     Route: 065
  6. CYCLOSPORINE [Suspect]
     Active Substance: CYCLOSPORINE
     Indication: Acute graft versus host disease in intestine
  7. ETOPOSIDE [Suspect]
     Active Substance: ETOPOSIDE
     Indication: Bone marrow conditioning regimen
     Dosage: UNK
     Route: 065
  8. VINCRISTINE [Suspect]
     Active Substance: VINCRISTINE
     Indication: T-cell type acute leukaemia
     Dosage: UNK
     Route: 065
  9. DAUNORUBICIN [Suspect]
     Active Substance: DAUNORUBICIN
     Indication: T-cell type acute leukaemia
     Dosage: UNK
     Route: 065
  10. DARATUMUMAB [Concomitant]
     Active Substance: DARATUMUMAB
     Indication: T-cell type acute leukaemia
     Dosage: 16 MILLIGRAM/KILOGRAM,RECEIVED WEEKLY ON DAY 1 FOR 8 WEEKS, FOLLOWED BY EVERY 2 WEEKS FOR A TOTAL OF
     Route: 050
  11. NELARABINE [Concomitant]
     Active Substance: NELARABINE
     Indication: T-cell type acute leukaemia
     Dosage: 1500 MILLIGRAM/SQ. METER,RECEIVED ON DAYS 1, 3 AND 5 EVERY 3 WEEKS FOR 2 COURSES
     Route: 065
  12. PEGFILGRASTIM [Concomitant]
     Active Substance: PEGFILGRASTIM
     Indication: T-cell type acute leukaemia
     Dosage: 6 MILLIGRAM,RECEIVED ON DAY 7 EVERY 3 WEEKS FOR 2 COURSES
     Route: 058

REACTIONS (12)
  - Acute graft versus host disease in liver [Not Recovered/Not Resolved]
  - Acute graft versus host disease in intestine [Not Recovered/Not Resolved]
  - Myelosuppression [Recovered/Resolved]
  - Bacteraemia [Unknown]
  - Therapy non-responder [Unknown]
  - Thrombocytopenia [Recovered/Resolved]
  - Sepsis [Unknown]
  - Fungal infection [Unknown]
  - Peripheral sensory neuropathy [Unknown]
  - Fatigue [Unknown]
  - Myalgia [Unknown]
  - Off label use [Unknown]
